FAERS Safety Report 8495527 (Version 3)
Quarter: 2014Q1

REPORT INFORMATION
  Report Type: Spontaneous
  Country: ES (occurrence: ES)
  Receive Date: 20120405
  Receipt Date: 20140206
  Transmission Date: 20141002
  Serious: No
  Sender: FDA-Public Use
  Company Number: ES-SANOFI-AVENTIS-2012SA021974

PATIENT
  Age: 37 Year
  Sex: Female

DRUGS (8)
  1. ARAVA [Suspect]
     Indication: RHEUMATOID ARTHRITIS
     Route: 048
     Dates: start: 20110209, end: 20110213
  2. ARAVA [Suspect]
     Indication: RHEUMATOID ARTHRITIS
     Route: 048
     Dates: start: 20110215, end: 20110227
  3. EUTIROX [Concomitant]
     Route: 048
     Dates: start: 200801
  4. SIMVASTATIN [Concomitant]
     Indication: HYPERCHOLESTEROLAEMIA
     Route: 048
     Dates: start: 200806
  5. SULFASALAZINE [Concomitant]
  6. IMUREL [Concomitant]
     Dates: end: 201105
  7. IMUREL [Concomitant]
  8. DACLIZUMAB [Concomitant]
     Dates: start: 20110606

REACTIONS (1)
  - Exposure during pregnancy [Unknown]
